FAERS Safety Report 15926708 (Version 1)
Quarter: 2019Q1

REPORT INFORMATION
  Report Type: Spontaneous
  Country: US (occurrence: US)
  Receive Date: 20190206
  Receipt Date: 20190206
  Transmission Date: 20190417
  Serious: Yes (Other)
  Sender: FDA-Public Use
  Company Number: US-TARO PHARMACEUTICALS USA.,INC-2019SUN00058

PATIENT
  Age: 12 Year
  Sex: Female

DRUGS (1)
  1. IBUPROFEN. [Suspect]
     Active Substance: IBUPROFEN
     Indication: HEADACHE
     Dosage: 600 MG (11 MG/KG), SIX TIMES A DAY
     Route: 065

REACTIONS (3)
  - Tubulointerstitial nephritis and uveitis syndrome [Recovering/Resolving]
  - Retinal detachment [Recovering/Resolving]
  - Overdose [Unknown]
